FAERS Safety Report 5693510-0 (Version None)
Quarter: 2008Q2

REPORT INFORMATION
  Report Type: 
  Country: None (occurrence: None)
  Receive Date: 20080403
  Receipt Date: 20080401
  Transmission Date: 20081010
  Serious: Yes (Other)
  Sender: FDA-Public Use
  Company Number: B0509319A

PATIENT
  Age: 10 Year
  Sex: Male
  Weight: 40 kg

DRUGS (6)
  1. RELENZA [Suspect]
     Indication: INFLUENZA
     Dosage: 10MG TWICE PER DAY
     Route: 055
     Dates: start: 20080218, end: 20080218
  2. FLOMAX [Concomitant]
     Dosage: 300MG PER DAY
     Route: 048
     Dates: start: 20080218, end: 20080221
  3. ASVERIN [Concomitant]
     Dosage: 30MG PER DAY
     Route: 048
     Dates: start: 20080218, end: 20080225
  4. ANTOBRON [Concomitant]
     Dosage: 45MG PER DAY
     Route: 048
     Dates: start: 20080218, end: 20080225
  5. TULOBUTEROL [Concomitant]
     Route: 062
  6. CALONAL [Concomitant]
     Route: 048

REACTIONS (8)
  - ABNORMAL BEHAVIOUR [None]
  - AGGRESSION [None]
  - AMNESIA [None]
  - BODY TEMPERATURE INCREASED [None]
  - DYSKINESIA [None]
  - FEELING ABNORMAL [None]
  - HYPERTHERMIA [None]
  - UNRESPONSIVE TO STIMULI [None]
